FAERS Safety Report 4356810-2 (Version None)
Quarter: 2004Q2

REPORT INFORMATION
  Report Type: 
  Country: None (occurrence: None)
  Receive Date: 20040507
  Receipt Date: 20040429
  Transmission Date: 20050107
  Serious: Yes (Hospitalization)
  Sender: FDA-Public Use
  Company Number: 04P-056-0254196-00

PATIENT
  Age: 22 Year
  Sex: Male

DRUGS (6)
  1. DEPAKOTE [Suspect]
     Indication: AFFECTIVE DISORDER
     Dosage: 2 DOSAGE FORMS, 1 IN 1 D, PER ORAL
     Route: 048
     Dates: start: 20040209, end: 20040223
  2. HALOPERIDOL [Suspect]
     Indication: PSYCHOTIC DISORDER
     Dosage: 5 MG, 2 IN 1 D, INTRAMUSCULAR
     Route: 030
     Dates: start: 20040216, end: 20040220
  3. CYAMEMAZINE [Suspect]
     Indication: PSYCHOTIC DISORDER
     Dosage: 50 MG, 2 IN 1 D, INTRAMUSCULAR
     Route: 030
     Dates: start: 20040216, end: 20040220
  4. CLONAZEPAM [Concomitant]
  5. ZOPLICONE [Concomitant]
  6. TROPATEPINE HYDROCHLORIDE [Concomitant]

REACTIONS (7)
  - ANOREXIA [None]
  - ASTHENIA [None]
  - CONFUSIONAL STATE [None]
  - CYTOLYTIC HEPATITIS [None]
  - RHABDOMYOLYSIS [None]
  - SOMNOLENCE [None]
  - THROMBOCYTOPENIA [None]
